FAERS Safety Report 17247908 (Version 1)
Quarter: 2019Q4

REPORT INFORMATION
  Report Type: Spontaneous
  Country: US (occurrence: US)
  Receive Date: 20191213
  Receipt Date: 20191213
  Transmission Date: 20200122
  Serious: Yes (Hospitalization)
  Sender: FDA-Public Use
  Company Number: None

PATIENT
  Age: 56 Year
  Sex: Male

DRUGS (1)
  1. HUMIRA [Suspect]
     Active Substance: ADALIMUMAB
     Indication: PSORIASIS
     Dosage: ?          OTHER DOSE:40MG/0.4ML PEN (2=;OTHER FREQUENCY:1PEN EVERY 14 DAYS;OTHER ROUTE:INJECTION?
     Dates: start: 20190202

REACTIONS (1)
  - Carpal tunnel decompression [None]
